FAERS Safety Report 19672081 (Version 2)
Quarter: 2021Q3

REPORT INFORMATION
  Report Type: Report from Study
  Country: JP (occurrence: JP)
  Receive Date: 20210806
  Receipt Date: 20210826
  Transmission Date: 20211014
  Serious: Yes (Other)
  Sender: FDA-Public Use
  Company Number: JP-CELLTRION INC.-2020JP025303

PATIENT

DRUGS (10)
  1. CT?P13 [Suspect]
     Active Substance: INFLIXIMAB-DYYB
     Indication: COLITIS ULCERATIVE
     Dosage: 310 MG (WEIGHT:61.8 KG)
     Route: 041
     Dates: start: 20181209, end: 20181209
  2. CT?P13 [Suspect]
     Active Substance: INFLIXIMAB-DYYB
     Dosage: 315 MG (WEIGHT: 63.1KG)
     Route: 041
     Dates: start: 20191110, end: 20191110
  3. CT?P13 [Suspect]
     Active Substance: INFLIXIMAB-DYYB
     Dosage: 315 MG (WEIGHT: 65.7 KG)
     Route: 041
     Dates: start: 20201220, end: 20201220
  4. MESALAZINE [Concomitant]
     Active Substance: MESALAMINE
     Dosage: UNK
     Route: 054
     Dates: start: 20181118, end: 20190330
  5. CT?P13 [Suspect]
     Active Substance: INFLIXIMAB-DYYB
     Dosage: 320 MG (WEIGHT: 64 KG)
     Route: 041
     Dates: start: 20190331, end: 20190331
  6. MESALAZINE [Concomitant]
     Active Substance: MESALAMINE
     Indication: COLITIS ULCERATIVE
     Dosage: 4800 MG, DAILY
     Route: 048
     Dates: start: 20181014
  7. CT?P13 [Suspect]
     Active Substance: INFLIXIMAB-DYYB
     Dosage: 315 MG (WEIGHT: 63.1 KG)
     Route: 041
     Dates: start: 20190526, end: 20190526
  8. CT?P13 [Suspect]
     Active Substance: INFLIXIMAB-DYYB
     Dosage: 320 MG (WEIGHT: 63.5 KG)
     Route: 041
     Dates: start: 20190203, end: 20190203
  9. AZATHIOPRINE. [Concomitant]
     Active Substance: AZATHIOPRINE
     Dosage: 150 MG, DAILY
     Route: 048
  10. MESALAZINE [Concomitant]
     Active Substance: MESALAMINE
     Dosage: UNK
     Route: 054
     Dates: start: 20190331

REACTIONS (11)
  - Nasopharyngitis [Recovered/Resolved]
  - Headache [Not Recovered/Not Resolved]
  - Cough [Recovered/Resolved]
  - Pharyngotonsillitis [Recovered/Resolved]
  - Underdose [Unknown]
  - Dizziness [Recovered/Resolved]
  - Product use issue [Unknown]
  - Hypoaesthesia [Unknown]
  - Depression [Not Recovered/Not Resolved]
  - Sinusitis [Recovered/Resolved]
  - Overdose [Unknown]

NARRATIVE: CASE EVENT DATE: 20190526
